FAERS Safety Report 7482123-6 (Version None)
Quarter: 2011Q2

REPORT INFORMATION
  Report Type: 
  Country: None (occurrence: None)
  Receive Date: 20110516
  Receipt Date: 20110506
  Transmission Date: 20111010
  Serious: No
  Sender: FDA-Public Use
  Company Number: US-PFIZER INC-2010122616

PATIENT
  Sex: Female
  Weight: 49.887 kg

DRUGS (7)
  1. VALSARTAN [Concomitant]
     Indication: BLOOD PRESSURE ABNORMAL
  2. DILTIAZEM [Concomitant]
     Indication: HYPERTENSION
     Dosage: 180 MG, UNK
     Route: 048
  3. VITAMINS [Concomitant]
     Dosage: UNK
  4. LYRICA [Suspect]
     Indication: NEURALGIA
  5. LYRICA [Suspect]
     Indication: SCOLIOSIS
     Dosage: 75 MG, 1X/DAY
     Route: 048
     Dates: start: 20100922
  6. DILTIAZEM [Concomitant]
     Indication: BLOOD PRESSURE ABNORMAL
  7. VALSARTAN [Concomitant]
     Indication: HYPERTENSION
     Dosage: 160 MG, 1X/DAY
     Route: 048

REACTIONS (8)
  - BURNING SENSATION [None]
  - DRUG INEFFECTIVE [None]
  - EUPHORIC MOOD [None]
  - BALANCE DISORDER [None]
  - FEELING HOT [None]
  - PARAESTHESIA [None]
  - PAIN [None]
  - OEDEMA PERIPHERAL [None]
